FAERS Safety Report 17884613 (Version 1)
Quarter: 2020Q2

REPORT INFORMATION
  Report Type: Report from Study
  Country: BR (occurrence: BR)
  Receive Date: 20200611
  Receipt Date: 20200611
  Transmission Date: 20200714
  Serious: Yes (Death, Other)
  Sender: FDA-Public Use
  Company Number: BR-ROCHE-2614496

PATIENT
  Sex: Female

DRUGS (2)
  1. PERJETA [Suspect]
     Active Substance: PERTUZUMAB
     Indication: HER2 POSITIVE BREAST CANCER
     Route: 065
  2. HERCEPTIN [Suspect]
     Active Substance: TRASTUZUMAB
     Indication: HER2 POSITIVE BREAST CANCER
     Route: 065

REACTIONS (8)
  - Madarosis [Unknown]
  - Anosmia [Unknown]
  - Sepsis [Fatal]
  - Alopecia totalis [Unknown]
  - Device related infection [Fatal]
  - Ageusia [Unknown]
  - Fatigue [Unknown]
  - Medical device site necrosis [Unknown]
